FAERS Safety Report 6645878-6 (Version None)
Quarter: 2010Q1

REPORT INFORMATION
  Report Type: 
  Country: None (occurrence: None)
  Receive Date: 20100323
  Receipt Date: 20100311
  Transmission Date: 20100710
  Serious: Yes (Hospitalization)
  Sender: FDA-Public Use
  Company Number: PHHY2008KR03523

PATIENT
  Sex: Female
  Weight: 55 kg

DRUGS (3)
  1. STI571/CGP57148B T35717+TAB [Suspect]
     Indication: GASTROINTESTINAL STROMAL TUMOUR
     Dosage: 400 MG / DAY
     Route: 048
     Dates: start: 20070404, end: 20080314
  2. DAPSONE [Suspect]
     Indication: NEURODERMATITIS
     Dosage: 100 MG, UNK
     Dates: start: 20080129, end: 20080216
  3. DAPSONE [Suspect]
     Dosage: 100 MG, UNK
     Dates: start: 20080305, end: 20080305

REACTIONS (8)
  - DRUG HYPERSENSITIVITY [None]
  - HAEMOLYTIC ANAEMIA [None]
  - NEURODERMATITIS [None]
  - PYREXIA [None]
  - RASH PAPULAR [None]
  - RASH PUSTULAR [None]
  - SCAB [None]
  - SKIN LESION [None]
